FAERS Safety Report 21838713 (Version 1)
Quarter: 2023Q1

REPORT INFORMATION
  Report Type: Spontaneous
  Country: HR (occurrence: HR)
  Receive Date: 20230109
  Receipt Date: 20230109
  Transmission Date: 20230417
  Serious: Yes (Other)
  Sender: FDA-Public Use
  Company Number: HR-002147023-NVSC2022HR258317

PATIENT
  Age: 59 Year
  Sex: Female

DRUGS (2)
  1. LETROZOLE [Suspect]
     Active Substance: LETROZOLE
     Indication: HER2 negative breast cancer
     Dosage: UNK
     Route: 065
     Dates: start: 202106
  2. KISQALI [Suspect]
     Active Substance: RIBOCICLIB
     Indication: HER2 negative breast cancer
     Dosage: UNK
     Route: 065
     Dates: start: 202106

REACTIONS (2)
  - Electrocardiogram QT prolonged [Unknown]
  - Nausea [Unknown]
